FAERS Safety Report 12831536 (Version 1)
Quarter: 2016Q4

REPORT INFORMATION
  Report Type: Report from Study
  Country: BR (occurrence: BR)
  Receive Date: 20161009
  Receipt Date: 20161009
  Transmission Date: 20170207
  Serious: Yes (Life-Threatening)
  Sender: FDA-Public Use
  Company Number: PHHY2016BR138081

PATIENT
  Sex: Male
  Weight: 73 kg

DRUGS (1)
  1. EXJADE [Suspect]
     Active Substance: DEFERASIROX
     Indication: THALASSAEMIA
     Dosage: 2250 MG, QD (4 TABLETS OF 500MG AND 1 TABLET OF 250 MG DAILY)
     Route: 048

REACTIONS (1)
  - Apparent death [Unknown]
